FAERS Safety Report 5457398-5 (Version None)
Quarter: 2007Q3

REPORT INFORMATION
  Report Type: 
  Country: None (occurrence: None)
  Receive Date: 20070918
  Receipt Date: 20070802
  Transmission Date: 20080115
  Serious: Yes (Hospitalization)
  Sender: FDA-Public Use
  Company Number: US-ASTRAZENECA-2007UW03693

PATIENT
  Age: 15992 Day
  Sex: Female

DRUGS (3)
  1. SEROQUEL [Suspect]
     Indication: SLEEP DISORDER
     Route: 048
  2. RISPERDAL [Suspect]
     Indication: DEPRESSION
  3. ZYPREXA [Suspect]
     Indication: DEPRESSION
     Dates: end: 19990101

REACTIONS (4)
  - CARDIAC DISORDER [None]
  - DEPRESSION [None]
  - HEART RATE INCREASED [None]
  - TYPE 2 DIABETES MELLITUS [None]
